FAERS Safety Report 8482219-6 (Version None)
Quarter: 2012Q3

REPORT INFORMATION
  Report Type: 
  Country: None (occurrence: None)
  Receive Date: 20120702
  Receipt Date: 20120626
  Transmission Date: 20120928
  Serious: Yes (Other)
  Sender: FDA-Public Use
  Company Number: US-SANOFI-AVENTIS-2012SA044432

PATIENT
  Age: 69 Year
  Sex: Female

DRUGS (49)
  1. AMARYL [Suspect]
     Route: 048
     Dates: start: 20101101, end: 20101127
  2. BACITRACIN ZINC [Concomitant]
  3. LEVAQUIN [Concomitant]
  4. MAGNESIUM SULFATE [Concomitant]
  5. VITAMIN B-12 [Concomitant]
  6. GLUCOSAMINE [Concomitant]
  7. ACETAMINOPHEN [Concomitant]
  8. BENZONATATE [Concomitant]
  9. HIPREX [Concomitant]
  10. NITROFURANTOIN [Concomitant]
  11. NAFTIN [Concomitant]
  12. DOCUSATE SODIUM [Concomitant]
  13. LECITHIN [Concomitant]
  14. TRICOR [Concomitant]
  15. METHOCARBAMOL [Concomitant]
  16. HYDROCODONE BITARTRATE AND ACETAMINOPHEN [Concomitant]
  17. CHROMIUM CHLORIDE [Concomitant]
  18. ALL OTHER THERAPEUTIC PRODUCTS [Concomitant]
  19. VALERIAN ROOT [Concomitant]
     Indication: STRESS
  20. LOVAZA [Concomitant]
  21. FLAXSEED OIL [Concomitant]
  22. METFORMIN HCL [Suspect]
     Route: 048
     Dates: start: 20091201, end: 20101220
  23. NAPROXEN [Concomitant]
  24. ESTRADIOL [Concomitant]
  25. SENNA-MINT WAF [Concomitant]
  26. ZADITOR [Concomitant]
  27. ALL OTHER THERAPEUTIC PRODUCTS [Concomitant]
  28. PSYLLIUM [Concomitant]
  29. ASPIRIN [Concomitant]
  30. TROSPIUM CHLORIDE [Concomitant]
  31. METFORMIN HCL [Suspect]
     Route: 048
     Dates: start: 20080724, end: 20091201
  32. SYNTHROID [Concomitant]
  33. ANTIBIOTICS [Concomitant]
  34. AZITHROMYCIN [Concomitant]
  35. PROMETHAZINE [Concomitant]
  36. OLOPATADINE HCL [Concomitant]
  37. LIDODERM [Concomitant]
  38. CALCIUM CITRATE [Concomitant]
  39. KELP [Concomitant]
  40. ALOE VERA [Concomitant]
  41. METHENAMINE TAB [Concomitant]
  42. AMARYL [Suspect]
     Route: 048
     Dates: start: 20051202, end: 20101101
  43. AVANDIA [Suspect]
     Route: 065
  44. METHOCARBAMOL [Concomitant]
  45. ALL OTHER THERAPEUTIC PRODUCTS [Concomitant]
  46. GEMFIBROZIL [Concomitant]
  47. HYDROMORPHONE HCL [Concomitant]
  48. FEXOFENADINE [Concomitant]
  49. VITAMIN B6 [Concomitant]
     Dosage: DOSE:50 NOT APPLICABLE

REACTIONS (17)
  - CONTUSION [None]
  - BLOOD GLUCOSE DECREASED [None]
  - FEELING COLD [None]
  - COLD SWEAT [None]
  - MUSCULOSKELETAL PAIN [None]
  - ULNAR NERVE PALSY [None]
  - MOBILITY DECREASED [None]
  - LIGAMENT SPRAIN [None]
  - FALL [None]
  - ROTATOR CUFF SYNDROME [None]
  - MUSCULOSKELETAL CHEST PAIN [None]
  - APHASIA [None]
  - MEMORY IMPAIRMENT [None]
  - CHEST PAIN [None]
  - NAIL OPERATION [None]
  - NAUSEA [None]
  - DIZZINESS [None]
